FAERS Safety Report 11568047 (Version 1)
Quarter: 2015Q3

REPORT INFORMATION
  Report Type: Spontaneous
  Country: US (occurrence: None)
  Receive Date: 20150925
  Receipt Date: 20150925
  Transmission Date: 20151125
  Serious: Yes (Congenital Anomaly)
  Sender: FDA-Public Use
  Company Number: US-ZYDUS-009106

PATIENT
  Age: 6 Month
  Sex: Female

DRUGS (5)
  1. RIBAVIRIN(RIBAVIRIN) [Suspect]
     Active Substance: RIBAVIRIN
     Indication: HEPATITIS C
     Dates: end: 201405
  2. SOVALDI(SOVALDI) [Concomitant]
  3. DEPO PROVERA(DEPO PROVERA) [Concomitant]
  4. PEGASYS [Suspect]
     Active Substance: PEGINTERFERON ALFA-2A
     Indication: HEPATITIS C
     Dates: end: 201405
  5. ORTHO TRI-CYCLEN(ORTHO TRI-CYCLEN) [Concomitant]

REACTIONS (2)
  - Plagiocephaly [None]
  - Maternal drugs affecting foetus [None]

NARRATIVE: CASE EVENT DATE: 20150818
